FAERS Safety Report 18224207 (Version 2)
Quarter: 2020Q3

REPORT INFORMATION
  Report Type: Spontaneous
  Country: US (occurrence: US)
  Receive Date: 20200902
  Receipt Date: 20200921
  Transmission Date: 20201103
  Serious: Yes (Other)
  Sender: FDA-Public Use
  Company Number: US-DSJP-DSU-2020-125516

PATIENT
  Age: 83 Year
  Sex: Female

DRUGS (1)
  1. ENHERTU [Suspect]
     Active Substance: FAM-TRASTUZUMAB DERUXTECAN-NXKI
     Indication: HER2 POSITIVE BREAST CANCER
     Dosage: UNK
     Route: 042
     Dates: end: 20200501

REACTIONS (4)
  - Interstitial lung disease [Unknown]
  - Fatigue [Unknown]
  - Hepatotoxicity [Unknown]
  - Disease progression [Unknown]
